FAERS Safety Report 5645293-8 (Version None)
Quarter: 2008Q1

REPORT INFORMATION
  Report Type: 
  Country: None (occurrence: None)
  Receive Date: 20080229
  Receipt Date: 20080218
  Transmission Date: 20080703
  Serious: Yes (Death)
  Sender: FDA-Public Use
  Company Number: BH-ROCHE-548430

PATIENT
  Age: 21 Year
  Sex: Male

DRUGS (4)
  1. ROCEPHIN [Suspect]
     Indication: DRUG USE FOR UNKNOWN INDICATION
     Route: 042
     Dates: start: 20080215, end: 20080215
  2. TRAMAL [Concomitant]
     Indication: ANALGESIC THERAPY
  3. PHENERGAN HCL [Concomitant]
     Indication: ANTIALLERGIC THERAPY
  4. DISTALGESIC [Concomitant]

REACTIONS (1)
  - ANAPHYLACTIC SHOCK [None]
